FAERS Safety Report 6716776-4 (Version None)
Quarter: 2010Q2

REPORT INFORMATION
  Report Type: 
  Country: None (occurrence: None)
  Receive Date: 20100510
  Receipt Date: 20100504
  Transmission Date: 20101027
  Serious: Yes (Death)
  Sender: FDA-Public Use
  Company Number: US-CELGENEUS-163-20785-10040882

PATIENT
  Sex: Female

DRUGS (2)
  1. THALOMID [Suspect]
     Indication: MULTIPLE MYELOMA
     Route: 048
     Dates: start: 20090601
  2. THALOMID [Suspect]
     Route: 048
     Dates: start: 20090301

REACTIONS (3)
  - MULTIPLE MYELOMA [None]
  - RESPIRATORY FAILURE [None]
  - SEPSIS [None]
